FAERS Safety Report 4281771-4 (Version None)
Quarter: 2004Q1

REPORT INFORMATION
  Report Type: 
  Country: None (occurrence: None)
  Receive Date: 20040128
  Receipt Date: 20040115
  Transmission Date: 20041129
  Serious: Yes (Hospitalization)
  Sender: FDA-Public Use
  Company Number: PERI00204000144

PATIENT
  Age: 61 Year
  Sex: Male

DRUGS (6)
  1. PERINDOPRIL (PERINDOPRIL) [Suspect]
     Indication: CARDIAC FAILURE CONGESTIVE
     Dosage: 2 MG ONCE PO
     Route: 048
  2. FUROSEMIDE [Concomitant]
  3. SPIRONOLACTONE [Concomitant]
  4. POTASSIUM (POTASSIUM) [Concomitant]
  5. ASPIRIN COMPOUND (ASPIRIN) [Concomitant]
  6. PHENOXYMETHYL PENICILLIN (PHENOXYMETHYL PENICILLIN) [Concomitant]

REACTIONS (3)
  - BLOOD PRESSURE DECREASED [None]
  - CEREBRAL INFARCTION [None]
  - HEMIANOPIA [None]
